FAERS Safety Report 16314765 (Version 1)
Quarter: 2019Q2

REPORT INFORMATION
  Report Type: Spontaneous
  Country: US (occurrence: US)
  Receive Date: 20190515
  Receipt Date: 20190515
  Transmission Date: 20190711
  Serious: Yes (Hospitalization, Disabling, Other)
  Sender: FDA-Public Use
  Company Number: US-JNJFOC-20190511715

PATIENT
  Age: 67 Year
  Sex: Male

DRUGS (1)
  1. INVOKAMET [Suspect]
     Active Substance: CANAGLIFLOZIN\METFORMIN HYDROCHLORIDE
     Indication: DIABETES MELLITUS
     Route: 065
     Dates: end: 201507

REACTIONS (8)
  - Osteomyelitis [Unknown]
  - Leg amputation [Unknown]
  - Neuropathic arthropathy [Unknown]
  - Cellulitis [Unknown]
  - Septic shock [Unknown]
  - Diabetic foot infection [Unknown]
  - Gas gangrene [Unknown]
  - Skin ulcer [Unknown]

NARRATIVE: CASE EVENT DATE: 2013
